FAERS Safety Report 5778345-2 (Version None)
Quarter: 2008Q2

REPORT INFORMATION
  Report Type: 
  Country: None (occurrence: None)
  Receive Date: 20080619
  Receipt Date: 20080610
  Transmission Date: 20081010
  Serious: Yes (Hospitalization)
  Sender: FDA-Public Use
  Company Number: CA-BAYER-CA-2006-035810

PATIENT
  Age: 50 Year
  Sex: Male

DRUGS (23)
  1. CAMPATH [Suspect]
     Indication: LIVER TRANSPLANT
     Dosage: UNIT DOSE: 30 MG
     Route: 042
     Dates: start: 20051030, end: 20051030
  2. CAMPATH [Suspect]
     Dosage: UNIT DOSE: 30 MG
     Route: 042
     Dates: start: 20051103, end: 20051103
  3. TACROLIMUS [Suspect]
     Indication: LIVER TRANSPLANT
     Dosage: TOTAL DAILY DOSE: 2 MG
     Route: 048
     Dates: start: 20060801, end: 20060909
  4. CALCIUM CARBONATE [Concomitant]
     Dates: start: 20060805
  5. PROTEGRA [Concomitant]
     Dates: start: 20060807
  6. CIPROFLOXACIN [Concomitant]
     Dates: start: 20060901
  7. CLINDAMYCIN HCL [Concomitant]
     Dates: start: 20060912
  8. DIDROCAL [Concomitant]
     Dates: start: 20060922
  9. RED BLOOD CELLS [Concomitant]
     Dates: start: 20060909, end: 20060909
  10. FLAGYL [Concomitant]
     Dates: start: 20060909
  11. VANCOMYCIN [Concomitant]
     Dates: start: 20060910, end: 20060911
  12. VITAMIN K TAB [Concomitant]
     Dates: start: 20060909, end: 20060911
  13. CENTRUM MULTIVITAMIN [Concomitant]
  14. SEPTRA [Concomitant]
     Dates: start: 20060925
  15. SODIUM CHLORIDE [Concomitant]
     Dates: start: 20060912
  16. AMATINE [Concomitant]
     Dates: start: 20060909, end: 20060918
  17. AMATINE [Concomitant]
     Dates: start: 20060919, end: 20060919
  18. ALBUMIN 25% [Concomitant]
     Dates: start: 20060909, end: 20060918
  19. CEFOTAXIME SODIUM [Concomitant]
     Dates: start: 20060909, end: 20060912
  20. SIROLIMUS [Concomitant]
     Dates: start: 20060909
  21. LASIX [Concomitant]
     Dates: start: 20060914
  22. ALDACTONE [Concomitant]
     Dates: start: 20060914, end: 20060928
  23. OCTREOTIDE ACETATE [Concomitant]
     Dates: start: 20060909

REACTIONS (1)
  - RENAL FAILURE ACUTE [None]
